FAERS Safety Report 7684680-3 (Version None)
Quarter: 2011Q3

REPORT INFORMATION
  Report Type: 
  Country: None (occurrence: None)
  Receive Date: 20110816
  Receipt Date: 20110808
  Transmission Date: 20111222
  Serious: Yes (Other)
  Sender: FDA-Public Use
  Company Number: US-CEPHALON-US017402

PATIENT
  Age: 30 Year
  Sex: Male

DRUGS (4)
  1. PROVIGIL [Suspect]
     Dosage: 200MG TABLET, 1/4 TABLET
     Route: 048
     Dates: start: 20040714, end: 20040714
  2. FLUOXETINE [Concomitant]
     Route: 048
  3. TRAZODONE HCL [Suspect]
     Dosage: EVERY 3-4 HOURS
     Route: 065
     Dates: start: 20040301, end: 20041101
  4. GABITRIL [Concomitant]
     Route: 048
     Dates: start: 20031101, end: 20041101

REACTIONS (2)
  - ANXIETY [None]
  - PANIC ATTACK [None]
